FAERS Safety Report 7516752-8 (Version None)
Quarter: 2011Q2

REPORT INFORMATION
  Report Type: 
  Country: None (occurrence: None)
  Receive Date: 20110601
  Receipt Date: 20110526
  Transmission Date: 20111010
  Serious: Yes (Hospitalization)
  Sender: FDA-Public Use
  Company Number: US-BRISTOL-MYERS SQUIBB COMPANY-15781941

PATIENT
  Age: 70 Year
  Sex: Male

DRUGS (15)
  1. NORCO [Concomitant]
     Dosage: 1DF-5/235(UNITS NOT SP)
  2. IPILIMUMAB [Suspect]
     Indication: MALIGNANT MELANOMA
     Route: 042
     Dates: start: 20110316, end: 20110517
  3. ASPIRIN [Concomitant]
  4. PEPCID [Concomitant]
  5. KEPPRA [Concomitant]
  6. ZOCOR [Concomitant]
  7. TOPROL-XL [Concomitant]
     Dates: start: 20100101
  8. DEXA [Concomitant]
  9. NYSTATIN [Concomitant]
  10. COMPAZINE [Concomitant]
  11. LOMOTIL [Concomitant]
     Dates: start: 20110517
  12. PEPCID [Concomitant]
     Dates: start: 20110101
  13. DIPHENOXYLATE HCL + ATROPINE SULFATE [Concomitant]
     Dosage: 1-2TABS
  14. MULTI-VITAMINS [Concomitant]
  15. TOPROL-XL [Concomitant]

REACTIONS (3)
  - DIARRHOEA [None]
  - ENTEROCOLITIS HAEMORRHAGIC [None]
  - DEHYDRATION [None]
